FAERS Safety Report 5585184-4 (Version None)
Quarter: 2008Q1

REPORT INFORMATION
  Report Type: 
  Country: None (occurrence: None)
  Receive Date: 20080109
  Receipt Date: 20080102
  Transmission Date: 20080703
  Serious: Yes (Other)
  Sender: FDA-Public Use
  Company Number: PHBS2008ES00444

PATIENT
  Age: 74 Year
  Sex: Female

DRUGS (8)
  1. DIOVAN HCT [Suspect]
     Dosage: VALS 160 / HCT 25 MG/DAY
     Route: 048
     Dates: start: 20070302
  2. SIMVASTATIN [Suspect]
     Route: 048
     Dates: start: 20070710, end: 20070714
  3. PLAVIX [Concomitant]
     Dosage: 75 MG, UNK
     Route: 048
     Dates: start: 20070302
  4. DERMATRANS [Concomitant]
     Dates: start: 20070302
  5. ADIRO [Concomitant]
     Dosage: 100 MG, UNK
     Route: 048
     Dates: start: 20070302
  6. NORVASC [Concomitant]
     Dosage: 5 MG, UNK
     Route: 048
     Dates: start: 20070302
  7. ALPRAZOLAM [Concomitant]
     Route: 048
     Dates: start: 20070302
  8. OMEPRAZOLE [Concomitant]
     Route: 048
     Dates: start: 20070302

REACTIONS (5)
  - ANXIETY [None]
  - BLOOD POTASSIUM DECREASED [None]
  - DISCOMFORT [None]
  - HYPOKALAEMIA [None]
  - TREMOR [None]
